FAERS Safety Report 11725921 (Version 3)
Quarter: 2016Q1

REPORT INFORMATION
  Report Type: Spontaneous
  Country: AT (occurrence: AT)
  Receive Date: 20151112
  Receipt Date: 20160203
  Transmission Date: 20160525
  Serious: Yes (Hospitalization, Other)
  Sender: FDA-Public Use
  Company Number: AT-AMGEN-AUTSP2015117415

PATIENT
  Age: 88 Year
  Sex: Female

DRUGS (3)
  1. PROLIA [Suspect]
     Active Substance: DENOSUMAB
     Indication: OSTEOPOROSIS POSTMENOPAUSAL
     Dosage: 60 MG, Q6MO
     Route: 058
     Dates: start: 20131218
  2. VITAMIN D                          /00107901/ [Concomitant]
     Active Substance: ERGOCALCIFEROL
     Dosage: 200000 IU, UNK
  3. CALCIUM [Concomitant]
     Active Substance: CALCIUM

REACTIONS (7)
  - Dizziness [Unknown]
  - Osteonecrosis of jaw [Unknown]
  - Arthralgia [Unknown]
  - Abscess jaw [Unknown]
  - Device loosening [Unknown]
  - Sciatica [Unknown]
  - Loose tooth [Unknown]

NARRATIVE: CASE EVENT DATE: 20140618
